FAERS Safety Report 21857481 (Version 1)
Quarter: 2023Q1

REPORT INFORMATION
  Report Type: Report from Study
  Country: US (occurrence: US)
  Receive Date: 20230113
  Receipt Date: 20230113
  Transmission Date: 20230417
  Serious: Yes (Death)
  Sender: FDA-Public Use
  Company Number: US-002147023-NVSC2023US007172

PATIENT
  Age: 79 Year
  Sex: Male

DRUGS (1)
  1. PLUVICTO [Suspect]
     Active Substance: LUTETIUM LU-177 VIPIVOTIDE TETRAXETAN
     Indication: Product used for unknown indication
     Dosage: UNK (3 TREATMENTS COMPLETED)
     Route: 042
     Dates: start: 20220721, end: 20221013

REACTIONS (1)
  - Death [Fatal]

NARRATIVE: CASE EVENT DATE: 20221130
